FAERS Safety Report 22146576 (Version 1)
Quarter: 2023Q1

REPORT INFORMATION
  Report Type: Spontaneous
  Country: US (occurrence: US)
  Receive Date: 20230328
  Receipt Date: 20230328
  Transmission Date: 20230418
  Serious: No
  Sender: FDA-Public Use
  Company Number: US-BRISTOL-MYERS SQUIBB COMPANY-2023-043545

PATIENT
  Age: 48 Year
  Sex: Female
  Weight: 58.51 kg

DRUGS (2)
  1. KENALOG [Suspect]
     Active Substance: TRIAMCINOLONE ACETONIDE
     Indication: Bursitis
     Dates: start: 20230308
  2. KENALOG [Suspect]
     Active Substance: TRIAMCINOLONE ACETONIDE
     Indication: Rotator cuff syndrome

REACTIONS (17)
  - Flushing [Unknown]
  - Pruritus [Unknown]
  - Headache [Unknown]
  - Ocular discomfort [Unknown]
  - Paranasal sinus discomfort [Unknown]
  - Blood glucose increased [Unknown]
  - Blood pressure increased [Unknown]
  - Heart rate increased [Unknown]
  - Tremor [Unknown]
  - Anxiety [Unknown]
  - Skin warm [Unknown]
  - Pain in extremity [Unknown]
  - Temperature regulation disorder [Unknown]
  - Hyperhidrosis [Unknown]
  - Discomfort [Unknown]
  - Visual impairment [Unknown]
  - Weight decreased [Unknown]
